FAERS Safety Report 20513507 (Version 1)
Quarter: 2022Q1

REPORT INFORMATION
  Report Type: Spontaneous
  Country: US (occurrence: US)
  Receive Date: 20220224
  Receipt Date: 20220224
  Transmission Date: 20220424
  Serious: No
  Sender: FDA-Public Use
  Company Number: US-AMNEAL PHARMACEUTICALS-2021-AMRX-04461

PATIENT
  Sex: Female

DRUGS (7)
  1. RYTARY [Suspect]
     Active Substance: CARBIDOPA\LEVODOPA
     Indication: Product used for unknown indication
     Dosage: 23.75/95 MG, 2 CAPSULES TID
     Route: 048
     Dates: end: 20210404
  2. RYTARY [Suspect]
     Active Substance: CARBIDOPA\LEVODOPA
     Dosage: 36.25/145 MG 1 CAPSULES, TID
     Route: 048
     Dates: start: 20210405, end: 20211025
  3. RYTARY [Suspect]
     Active Substance: CARBIDOPA\LEVODOPA
     Dosage: 23.75/95MG + 36.25/145MG: 2 CAPSULES, QD (1 CAPSULE OF EACH 23.75/95MG AND 36.25/145MG)
     Route: 048
     Dates: start: 20211026, end: 2021
  4. RYTARY [Suspect]
     Active Substance: CARBIDOPA\LEVODOPA
     Dosage: 36.25/145 MG, 1 CAPSULES, DAILY EVERY EVENING
     Route: 048
     Dates: start: 20211208
  5. RYTARY [Suspect]
     Active Substance: CARBIDOPA\LEVODOPA
     Dosage: 23.75/95MG + 36.25/145 MG, 4 CAPSULES, DAILY
     Route: 048
  6. RYTARY [Suspect]
     Active Substance: CARBIDOPA\LEVODOPA
     Dosage: 23.75/95MG + 36.25/145 MG, 3 CAPSULES, DAILY
     Route: 048
     Dates: start: 20211214
  7. RYTARY [Suspect]
     Active Substance: CARBIDOPA\LEVODOPA
     Dosage: UNK

REACTIONS (3)
  - Dementia [Unknown]
  - Drug intolerance [Unknown]
  - Weight decreased [Unknown]

NARRATIVE: CASE EVENT DATE: 20210101
